FAERS Safety Report 14222400 (Version 1)
Quarter: 2017Q4

REPORT INFORMATION
  Report Type: Spontaneous
  Country: DE (occurrence: DE)
  Receive Date: 20171124
  Receipt Date: 20171124
  Transmission Date: 20180321
  Serious: Yes (Other)
  Sender: FDA-Public Use
  Company Number: DE-AUROBINDO-AUR-APL-2017-43637

PATIENT
  Age: 67 Year
  Sex: Male

DRUGS (2)
  1. AMIODARONE 200MG [Suspect]
     Active Substance: AMIODARONE
     Indication: ATRIAL FIBRILLATION
     Dosage: 200 MG, ONCE A DAY
     Route: 065
  2. IBRUTINIB [Interacting]
     Active Substance: IBRUTINIB
     Indication: MANTLE CELL LYMPHOMA
     Dosage: 560 MG, ONCE A DAY
     Route: 065

REACTIONS (9)
  - Pulmonary hypertension [Recovered/Resolved]
  - Drug ineffective [Unknown]
  - Diastolic dysfunction [Recovered/Resolved]
  - Tachyarrhythmia [Recovered/Resolved]
  - Drug interaction [Recovered/Resolved]
  - Atrial fibrillation [Recovered/Resolved]
  - Ejection fraction decreased [Recovered/Resolved]
  - Cardiac failure [Recovered/Resolved]
  - Dyspnoea [Recovered/Resolved]
